FAERS Safety Report 5258548-6 (Version None)
Quarter: 2007Q1

REPORT INFORMATION
  Report Type: 
  Country: None (occurrence: None)
  Receive Date: 20070308
  Receipt Date: 20070302
  Transmission Date: 20070707
  Serious: Yes (Death)
  Sender: FDA-Public Use
  Company Number: CH-BRISTOL-MYERS SQUIBB COMPANY-13539200

PATIENT
  Age: 95 Year
  Sex: Female

DRUGS (5)
  1. MAXIPIME [Suspect]
     Indication: PNEUMONIA
     Route: 040
     Dates: start: 20060922, end: 20060924
  2. ASPEGIC 1000 [Concomitant]
     Route: 041
  3. FRAGMIN [Concomitant]
     Route: 058
     Dates: start: 20060922
  4. NITRODERM PATCH [Concomitant]
     Route: 003
  5. ELTROXIN [Concomitant]
     Route: 048

REACTIONS (3)
  - CARDIAC FAILURE [None]
  - COMA [None]
  - STATUS EPILEPTICUS [None]
